FAERS Safety Report 17901211 (Version 1)
Quarter: 2020Q2

REPORT INFORMATION
  Report Type: Other
  Country: US (occurrence: US)
  Receive Date: 20200616
  Receipt Date: 20200616
  Transmission Date: 20200714
  Serious: No
  Sender: FDA-Public Use
  Company Number: US-APOTEX-2019AP019270

PATIENT

DRUGS (1)
  1. FLUVOXAMINE MALEATE. [Suspect]
     Active Substance: FLUVOXAMINE MALEATE
     Indication: ANXIETY
     Dosage: UNK
     Route: 065

REACTIONS (4)
  - Product formulation issue [Unknown]
  - Anxiety [Unknown]
  - Drug ineffective [Unknown]
  - Product substitution issue [Unknown]
